FAERS Safety Report 8788889 (Version 1)
Quarter: 2012Q4

REPORT INFORMATION
  Report Type: 
  Country: US (occurrence: US)
  Receive Date: 20120917
  Receipt Date: 20120917
  Transmission Date: 20130627
  Serious: No
  Sender: FDA-Public Use
  Company Number: US-PFIZER INC-2012225707

PATIENT
  Sex: Male

DRUGS (1)
  1. VIAGRA [Suspect]
     Indication: ERECTILE DYSFUNCTION
     Dosage: UNK
     Route: 048

REACTIONS (6)
  - Ejaculation disorder [Unknown]
  - Penile swelling [Unknown]
  - Penis disorder [Unknown]
  - Testicular disorder [Unknown]
  - Erection increased [Recovered/Resolved]
  - Penis disorder [Unknown]
